FAERS Safety Report 11204880 (Version 1)
Quarter: 2015Q2

REPORT INFORMATION
  Report Type: Spontaneous
  Country: JP (occurrence: None)
  Receive Date: 20150617
  Receipt Date: 20150617
  Transmission Date: 20150821
  Serious: Yes (Other)
  Sender: FDA-Public Use
  Company Number: SP09631

PATIENT
  Age: 42 Year
  Sex: Female

DRUGS (7)
  1. SODIUM PICOSULFATE [Concomitant]
     Active Substance: SODIUM PICOSULFATE
  2. FAMOTIDINE OD [Concomitant]
  3. MOVIPREP [Suspect]
     Active Substance: ASCORBIC ACID\POLYETHYLENE GLYCOL 3350\POTASSIUM CHLORIDE\SODIUM ASCORBATE\SODIUM CHLORIDE\SODIUM SULFATE
     Indication: ENDOSCOPY LARGE BOWEL
     Dosage: 1 TOTAL (700 ML), ORAL
     Route: 048
     Dates: start: 20150513, end: 20150513
  4. PREDONINE [Concomitant]
     Active Substance: PREDNISOLONE\PREDNISOLONE ACETATE\PREDNISOLONE SODIUM SUCCINATE
  5. HEPARIN [Concomitant]
     Active Substance: HEPARIN SODIUM
  6. BIO-THREE [Concomitant]
     Active Substance: HERBALS
  7. ASACOL [Concomitant]
     Active Substance: MESALAMINE

REACTIONS (3)
  - Wheezing [None]
  - Pruritus [None]
  - Erythema [None]
